FAERS Safety Report 4976306-4 (Version None)
Quarter: 2006Q2

REPORT INFORMATION
  Report Type: 
  Country: None (occurrence: None)
  Receive Date: 20060412
  Receipt Date: 20060330
  Transmission Date: 20061013
  Serious: Yes (Disabling, Other)
  Sender: FDA-Public Use
  Company Number: 2006045203

PATIENT
  Sex: Male

DRUGS (9)
  1. CELEBREX [Suspect]
     Indication: ARTHROPATHY
     Dosage: ORAL
     Route: 048
  2. CELEBREX [Suspect]
     Indication: BACK PAIN
     Dosage: ORAL
     Route: 048
  3. TENORMIN [Concomitant]
  4. VALSARTAN [Concomitant]
  5. LOSEC (OMEPRAZOLE) [Concomitant]
  6. ASPIRIN [Concomitant]
  7. APO-DOMPERIDONE (DOMPERIDONE MALEATE) [Concomitant]
  8. ASAPHEN (ACETYLSALICYLIC ACID) [Concomitant]
  9. GAVISCON [Concomitant]

REACTIONS (3)
  - ARRHYTHMIA [None]
  - BLINDNESS UNILATERAL [None]
  - RETINAL VASCULAR THROMBOSIS [None]
